FAERS Safety Report 22538285 (Version 1)
Quarter: 2023Q2

REPORT INFORMATION
  Report Type: Spontaneous
  Country: US (occurrence: US)
  Receive Date: 20230609
  Receipt Date: 20230609
  Transmission Date: 20230722
  Serious: Yes (Hospitalization)
  Sender: FDA-Public Use
  Company Number: US-SLATE RUN PHARMACEUTICALS-23US001619

PATIENT

DRUGS (2)
  1. METOPROLOL SUCCINATE [Suspect]
     Active Substance: METOPROLOL SUCCINATE
     Indication: Maternal exposure timing unspecified
     Dosage: UNK
  2. ASPIRIN [Concomitant]
     Active Substance: ASPIRIN
     Indication: Maternal exposure timing unspecified
     Dosage: UNK

REACTIONS (4)
  - Neonatal tachypnoea [Unknown]
  - Premature baby [Unknown]
  - Gene mutation identification test positive [Unknown]
  - Foetal exposure during pregnancy [Unknown]
